FAERS Safety Report 6335307-4 (Version None)
Quarter: 2009Q3

REPORT INFORMATION
  Report Type: 
  Country: None (occurrence: None)
  Receive Date: 20090827
  Receipt Date: 20090824
  Transmission Date: 20100115
  Serious: Yes (Death)
  Sender: FDA-Public Use
  Company Number: CERZ-1000782

PATIENT
  Age: 3 Year
  Sex: Male

DRUGS (1)
  1. CEREZYME [Suspect]
     Indication: GAUCHER'S DISEASE
     Dosage: 60 U/KG, Q2W, INTRAVENOUS
     Route: 042
     Dates: start: 20000309, end: 20020610

REACTIONS (5)
  - APNOEA [None]
  - CONDITION AGGRAVATED [None]
  - HYPERTONIA [None]
  - NEUROLOGICAL SYMPTOM [None]
  - RESPIRATORY ARREST [None]
